FAERS Safety Report 5301398-2 (Version None)
Quarter: 2007Q2

REPORT INFORMATION
  Report Type: 
  Country: None (occurrence: None)
  Receive Date: 20070418
  Receipt Date: 20070406
  Transmission Date: 20071010
  Serious: Yes (Other)
  Sender: FDA-Public Use
  Company Number: US-PFIZER INC-2007026313

PATIENT
  Sex: Female
  Weight: 68 kg

DRUGS (4)
  1. CHANTIX [Suspect]
     Indication: SMOKING CESSATION THERAPY
     Dates: start: 20070218, end: 20070326
  2. SYNTHROID [Concomitant]
  3. DIURETICS [Concomitant]
  4. VITAMINS [Concomitant]

REACTIONS (11)
  - ASPHYXIA [None]
  - ASTHENIA [None]
  - DEPRESSED MOOD [None]
  - DISTURBANCE IN ATTENTION [None]
  - FEELING JITTERY [None]
  - HEADACHE [None]
  - INSOMNIA [None]
  - PHARYNGOLARYNGEAL PAIN [None]
  - SLUGGISHNESS [None]
  - THYROID DISORDER [None]
  - TREMOR [None]
